FAERS Safety Report 19722865 (Version 8)
Quarter: 2022Q2

REPORT INFORMATION
  Report Type: Report from Study
  Country: US (occurrence: US)
  Receive Date: 20210819
  Receipt Date: 20220418
  Transmission Date: 20220721
  Serious: No
  Sender: FDA-Public Use
  Company Number: NVSC2021US186333

PATIENT
  Age: 65 Year
  Sex: Male
  Weight: 88.9 kg

DRUGS (5)
  1. ENTRESTO [Suspect]
     Active Substance: SACUBITRIL\VALSARTAN
     Indication: Cardiac failure
     Dosage: 1 DOSAGE FORM, (49/51 MG), BID
     Route: 048
     Dates: start: 20210612
  2. ENTRESTO [Suspect]
     Active Substance: SACUBITRIL\VALSARTAN
     Dosage: 100 MG (49/51 MG), BID
     Route: 048
     Dates: start: 20210712
  3. ENTRESTO [Suspect]
     Active Substance: SACUBITRIL\VALSARTAN
     Dosage: 200 (97/103) MG, BID
     Route: 048
     Dates: start: 20210728
  4. ENTRESTO [Suspect]
     Active Substance: SACUBITRIL\VALSARTAN
     Route: 048
     Dates: start: 20210612
  5. AMIODARONE [Concomitant]
     Active Substance: AMIODARONE
     Indication: Atrial fibrillation
     Dosage: 200 MG, QD
     Route: 048
     Dates: start: 20210519

REACTIONS (7)
  - Heart rate decreased [Recovered/Resolved]
  - Fatigue [Recovered/Resolved]
  - Hypotension [Recovering/Resolving]
  - Weight increased [Not Recovered/Not Resolved]
  - Myalgia [Unknown]
  - Decreased activity [Unknown]
  - Product dose omission issue [Unknown]

NARRATIVE: CASE EVENT DATE: 20210712
